FAERS Safety Report 6545058-9 (Version None)
Quarter: 2010Q1

REPORT INFORMATION
  Report Type: 
  Country: None (occurrence: None)
  Receive Date: 20100121
  Receipt Date: 20100118
  Transmission Date: 20100710
  Serious: Yes (Hospitalization)
  Sender: FDA-Public Use
  Company Number: B0628154A

PATIENT
  Sex: Male

DRUGS (9)
  1. LANOXIN [Suspect]
     Indication: DRUG USE FOR UNKNOWN INDICATION
     Dosage: .25MG PER DAY
     Route: 048
  2. TICLOPIDINE HCL [Concomitant]
     Route: 048
  3. PAROXETINE HCL [Concomitant]
  4. AMLODIPINE [Concomitant]
  5. CORDARONE [Concomitant]
     Dosage: 200MG PER DAY
     Route: 048
  6. LASIX [Concomitant]
     Indication: HYPERTENSION
     Dosage: 25MG PER DAY
     Route: 048
  7. OMEPRAZOLE [Concomitant]
     Dosage: 10MG PER DAY
     Route: 048
  8. CALCIUM [Concomitant]
     Dosage: 1000MG PER DAY
     Route: 048
  9. TAVOR [Concomitant]
     Dosage: 1MG PER DAY
     Route: 048

REACTIONS (5)
  - ASTHENIA [None]
  - CONFUSIONAL STATE [None]
  - RENAL IMPAIRMENT [None]
  - THERAPEUTIC AGENT TOXICITY [None]
  - VOMITING [None]
